FAERS Safety Report 25262716 (Version 4)
Quarter: 2025Q2

REPORT INFORMATION
  Report Type: Report from Study
  Country: US (occurrence: US)
  Receive Date: 20250502
  Receipt Date: 20250625
  Transmission Date: 20250717
  Serious: Yes (Hospitalization)
  Sender: TAKEDA
  Company Number: US-TAKEDA-2025TUS040928

PATIENT
  Age: 70 Year
  Sex: Female

DRUGS (35)
  1. BRIGATINIB [Suspect]
     Active Substance: BRIGATINIB
     Indication: Lung neoplasm malignant
     Dosage: 90 MILLIGRAM, QD
     Dates: start: 20250421
  2. BRIGATINIB [Suspect]
     Active Substance: BRIGATINIB
     Dosage: 180 MILLIGRAM, QD
  3. BRIGATINIB [Suspect]
     Active Substance: BRIGATINIB
     Dosage: 180 MILLIGRAM, QD
  4. Berberine ES [Concomitant]
  5. GLUCOSAMINE SULFATE [Concomitant]
     Active Substance: GLUCOSAMINE SULFATE
  6. CALTRATE [Concomitant]
     Active Substance: CALCIUM CARBONATE
     Indication: Supplementation therapy
  7. Centrum adults [Concomitant]
  8. CALCIUM CITRATE [Concomitant]
     Active Substance: CALCIUM CITRATE
  9. CURCUMIN [Concomitant]
     Active Substance: CURCUMIN
  10. DENOSUMAB [Concomitant]
     Active Substance: DENOSUMAB
  11. IODINE [Concomitant]
     Active Substance: IODINE
     Route: 061
  12. LISINOPRIL [Concomitant]
     Active Substance: LISINOPRIL
  13. MS CONTIN [Concomitant]
     Active Substance: MORPHINE SULFATE
  14. COLLAGEN [Concomitant]
     Active Substance: COLLAGEN
  15. OCUVITE [Concomitant]
     Active Substance: VITAMINS
  16. PANTOPRAZOLE [Concomitant]
     Active Substance: PANTOPRAZOLE
  17. PROCHLORPERAZINE [Concomitant]
     Active Substance: PROCHLORPERAZINE
  18. VITAMIN B12 [Concomitant]
     Active Substance: CYANOCOBALAMIN
  19. SENNA [Concomitant]
     Active Substance: SENNOSIDES
  20. TYLENOL EXTRA STRENGTH [Concomitant]
     Active Substance: ACETAMINOPHEN
  21. VITAMIN C [Concomitant]
     Active Substance: ASCORBIC ACID
  22. VITAMIN D3 [Concomitant]
     Active Substance: CHOLECALCIFEROL
  23. VITAMIN E [Concomitant]
     Active Substance: .ALPHA.-TOCOPHEROL
  24. ZINC GLUCONATE [Concomitant]
     Active Substance: ZINC GLUCONATE
  25. ZOFRAN [Concomitant]
     Active Substance: ONDANSETRON HYDROCHLORIDE
  26. LASIX [Concomitant]
     Active Substance: FUROSEMIDE
  27. ALBUTEROL SULFATE [Concomitant]
     Active Substance: ALBUTEROL SULFATE
  28. SODIUM CHLORIDE [Concomitant]
     Active Substance: SODIUM CHLORIDE
  29. CALCITRIOL [Concomitant]
     Active Substance: CALCITRIOL
  30. MILK OF MAGNESIA [Concomitant]
     Active Substance: MAGNESIUM HYDROXIDE
  31. MELATONIN [Concomitant]
     Active Substance: MELATONIN
  32. TIZANIDINE HYDROCHLORIDE [Concomitant]
     Active Substance: TIZANIDINE HYDROCHLORIDE
  33. MELOXICAM [Concomitant]
     Active Substance: MELOXICAM
  34. PREGABALIN [Concomitant]
     Active Substance: PREGABALIN
  35. ASPIRIN [Concomitant]
     Active Substance: ASPIRIN

REACTIONS (10)
  - Humerus fracture [Not Recovered/Not Resolved]
  - Product dose omission issue [Unknown]
  - Diarrhoea [Recovered/Resolved]
  - Weight bearing difficulty [Unknown]
  - Gait disturbance [Unknown]
  - Fluid retention [Unknown]
  - Blood sodium decreased [Unknown]
  - Blood calcium decreased [Unknown]
  - Constipation [Unknown]
  - Blood glucose increased [Recovered/Resolved]

NARRATIVE: CASE EVENT DATE: 20250421
